FAERS Safety Report 5875819-0 (Version None)
Quarter: 2008Q3

REPORT INFORMATION
  Report Type: 
  Country: None (occurrence: None)
  Receive Date: 20080909
  Receipt Date: 20080828
  Transmission Date: 20090109
  Serious: Yes (Other)
  Sender: FDA-Public Use
  Company Number: US-PFIZER INC-2008057001

PATIENT
  Sex: Male
  Weight: 109 kg

DRUGS (2)
  1. CHANTIX [Suspect]
     Indication: SMOKING CESSATION THERAPY
     Dates: start: 20080601, end: 20080705
  2. ALCOHOL [Suspect]

REACTIONS (8)
  - ABNORMAL BEHAVIOUR [None]
  - ADVERSE DRUG REACTION [None]
  - AGGRESSION [None]
  - MEMORY IMPAIRMENT [None]
  - MOOD SWINGS [None]
  - RASH [None]
  - SCREAMING [None]
  - SPEECH DISORDER [None]
